FAERS Safety Report 23779951 (Version 1)
Quarter: 2024Q2

REPORT INFORMATION
  Report Type: Spontaneous
  Country: US (occurrence: US)
  Receive Date: 20240424
  Receipt Date: 20240424
  Transmission Date: 20240715
  Serious: Yes (Other)
  Sender: FDA-Public Use
  Company Number: US-JNJFOC-20240458068

PATIENT
  Sex: Male

DRUGS (1)
  1. RISPERDAL [Suspect]
     Active Substance: RISPERIDONE
     Indication: Behaviour disorder
     Dosage: THRICE DAILY AND TWICE DAILY
     Route: 048

REACTIONS (3)
  - Obesity [Recovering/Resolving]
  - Increased appetite [Recovered/Resolved]
  - Off label use [Unknown]
